FAERS Safety Report 4580279-6 (Version None)
Quarter: 2005Q1

REPORT INFORMATION
  Report Type: 
  Country: None (occurrence: None)
  Receive Date: 20050129
  Receipt Date: 20040422
  Transmission Date: 20050727
  Serious: Yes (Death)
  Sender: FDA-Public Use
  Company Number: 04USA0020

PATIENT
  Age: 51 Year
  Sex: 0

DRUGS (1)
  1. GLIADEL [Suspect]
     Indication: GLIOBLASTOMA MULTIFORME
     Dates: start: 20020830, end: 20020830

REACTIONS (1)
  - CEREBROVASCULAR ACCIDENT [None]
